FAERS Safety Report 21758607 (Version 2)
Quarter: 2023Q1

REPORT INFORMATION
  Report Type: Spontaneous
  Country: GB (occurrence: None)
  Receive Date: 20221221
  Receipt Date: 20230125
  Transmission Date: 20230418
  Serious: Yes (Death, Life-Threatening, Hospitalization, Disabling, Other)
  Sender: FDA-Public Use
  Company Number: GB-MHRA-MED-202212071226073120-HJTGQ

PATIENT
  Age: 89 Year
  Sex: Female

DRUGS (2)
  1. VANCOMYCIN [Suspect]
     Active Substance: VANCOMYCIN
     Indication: Endocarditis
     Dosage: 1G ONCE DAILY AT TEATIME TO COMMENCE AT 18:00 THEN 1G TWICE DAILY
     Route: 065
     Dates: start: 20221123, end: 20221130
  2. VANCOMYCIN [Suspect]
     Active Substance: VANCOMYCIN
     Indication: Endocarditis bacterial

REACTIONS (13)
  - Oesophageal achalasia [Fatal]
  - Atrial fibrillation [Fatal]
  - Pneumonia [Fatal]
  - Acute kidney injury [Fatal]
  - Subacute endocarditis [Fatal]
  - Sepsis [Fatal]
  - Toxicity to various agents [Fatal]
  - Drug level decreased [Unknown]
  - Malaise [Unknown]
  - Product dispensing error [Unknown]
  - Medication error [Unknown]
  - Product monitoring error [Unknown]
  - Accidental overdose [Unknown]

NARRATIVE: CASE EVENT DATE: 20220101
